FAERS Safety Report 7996167-9 (Version None)
Quarter: 2011Q4

REPORT INFORMATION
  Report Type: 
  Country: None (occurrence: None)
  Receive Date: 20111220
  Receipt Date: 20111215
  Transmission Date: 20120403
  Serious: Yes (Life-Threatening, Hospitalization)
  Sender: FDA-Public Use
  Company Number: PHHY2011MX107822

PATIENT
  Sex: Female

DRUGS (7)
  1. ZOLEDRONOC ACID [Suspect]
     Indication: OSTEOPOROSIS
     Dosage: 5 MG/100 ML, EACH YEAR
     Route: 042
     Dates: start: 20091101
  2. PROPRANOLOL [Concomitant]
     Indication: HYPERTENSION
     Dosage: 1.5 TABLETS DAILY, QD
     Dates: start: 20110624
  3. VITAMIN TAB [Concomitant]
     Indication: DIABETES MELLITUS
     Dosage: 1 TABLET DAILY, QD
     Dates: start: 20111201
  4. IMURAN [Concomitant]
     Indication: INFLAMMATION
     Dosage: 3 TABLETS DAILY, QD
     Dates: start: 20100601
  5. ARALEN [Concomitant]
     Indication: OSTEOPOROSIS
     Dosage: 1 TABLET DAILY, QD
     Dates: start: 20091001
  6. ACETYLSALICYLIC ACID [Concomitant]
     Indication: ANGIOPATHY
     Dosage: 1 TABLET DAILY, QD
     Dates: start: 20090101
  7. OS-CAL D [Concomitant]
     Indication: OSTEOPOROSIS
     Dosage: 1 TABLET DAILY, QD
     Dates: start: 20091001

REACTIONS (6)
  - DYSPNOEA [None]
  - ANAEMIA [None]
  - OEDEMA PERIPHERAL [None]
  - JOINT SWELLING [None]
  - AGITATION [None]
  - BLOOD GLUCOSE INCREASED [None]
